FAERS Safety Report 6597085-3 (Version None)
Quarter: 2010Q1

REPORT INFORMATION
  Report Type: 
  Country: None (occurrence: None)
  Receive Date: 20100223
  Receipt Date: 20100220
  Transmission Date: 20100710
  Serious: Yes (Hospitalization)
  Sender: FDA-Public Use
  Company Number: Z0003158A

PATIENT
  Age: 72 Year
  Sex: Male
  Weight: 105.5 kg

DRUGS (5)
  1. PAZOPANIB [Suspect]
     Indication: RENAL CELL CARCINOMA
     Dosage: 800MG PER DAY
     Route: 048
     Dates: start: 20100112
  2. TEKTURNA [Concomitant]
     Indication: HYPERTENSION
     Dosage: 150MG PER DAY
     Route: 048
     Dates: start: 20100205, end: 20100205
  3. TEKTURNA [Concomitant]
     Dosage: 150MG PER DAY
     Route: 048
     Dates: start: 20100207
  4. CRESTOR [Concomitant]
     Dosage: 10MG PER DAY
     Route: 048
     Dates: start: 20100205
  5. JANUVIA [Concomitant]
     Dosage: 50MG PER DAY
     Route: 048
     Dates: start: 20100205

REACTIONS (4)
  - ASTHENIA [None]
  - NAUSEA [None]
  - POLYCYTHAEMIA [None]
  - THROMBOCYTOPENIA [None]
